FAERS Safety Report 8202482-6 (Version None)
Quarter: 2012Q1

REPORT INFORMATION
  Report Type: 
  Country: None (occurrence: None)
  Receive Date: 20120312
  Receipt Date: 20120306
  Transmission Date: 20120608
  Serious: No
  Sender: FDA-Public Use
  Company Number: US-PFIZER INC-2012061108

PATIENT
  Age: 17 Year
  Sex: Female

DRUGS (2)
  1. NORGESTREL AND ETHINYL ESTRADIOL [Suspect]
     Indication: DYSMENORRHOEA
  2. NORGESTREL AND ETHINYL ESTRADIOL [Suspect]
     Indication: OFF LABEL USE
     Dosage: 1 TABLET DAILY

REACTIONS (3)
  - VOMITING [None]
  - PRODUCT QUALITY ISSUE [None]
  - MUSCLE SPASMS [None]
